FAERS Safety Report 5340259-X (Version None)
Quarter: 2007Q2

REPORT INFORMATION
  Report Type: 
  Country: None (occurrence: None)
  Receive Date: 20070531
  Receipt Date: 20070530
  Transmission Date: 20071010
  Serious: Yes (Disabling)
  Sender: FDA-Public Use
  Company Number: SE-BRISTOL-MYERS SQUIBB COMPANY-13538947

PATIENT
  Age: 62 Year
  Sex: Male

DRUGS (7)
  1. VINFLUNINE [Suspect]
     Indication: TRANSITIONAL CELL CARCINOMA
     Route: 042
     Dates: start: 20060308, end: 20060308
  2. RADIOTHERAPY [Suspect]
     Indication: TRANSITIONAL CELL CARCINOMA
     Dates: start: 20061204, end: 20061204
  3. METAMINE [Concomitant]
     Dates: start: 20060224
  4. IPRATROPIUM BROMIDE [Concomitant]
     Dates: start: 20051110
  5. OMEPRAZOLE [Concomitant]
     Dates: start: 20060610
  6. ZOLPIDEM [Concomitant]
     Dates: start: 20050101
  7. PACLITAXEL [Concomitant]
     Dates: start: 20060823

REACTIONS (1)
  - HYPOAESTHESIA [None]
